FAERS Safety Report 18519989 (Version 1)
Quarter: 2020Q4

REPORT INFORMATION
  Report Type: Spontaneous
  Country: US (occurrence: US)
  Receive Date: 20201119
  Receipt Date: 20201119
  Transmission Date: 20210114
  Serious: No
  Sender: FDA-Public Use
  Company Number: US-TEVA-2020-US-1850369

PATIENT
  Sex: Male

DRUGS (1)
  1. CLONIDINE. [Suspect]
     Active Substance: CLONIDINE
     Indication: ARTHRALGIA
     Dosage: .1 MILLIGRAM DAILY;
     Route: 062
     Dates: start: 202007

REACTIONS (3)
  - Product quality issue [Unknown]
  - Skin burning sensation [Unknown]
  - Application site erythema [Unknown]

NARRATIVE: CASE EVENT DATE: 20201026
